FAERS Safety Report 13432203 (Version 3)
Quarter: 2020Q2

REPORT INFORMATION
  Report Type: Spontaneous
  Country: US (occurrence: US)
  Receive Date: 20170412
  Receipt Date: 20200624
  Transmission Date: 20200713
  Serious: Yes (Death, Hospitalization)
  Sender: FDA-Public Use
  Company Number: US-JNJFOC-20170321424

PATIENT
  Age: 69 Year
  Sex: Male

DRUGS (2)
  1. XARELTO [Suspect]
     Active Substance: RIVAROXABAN
     Indication: THROMBOSIS PROPHYLAXIS
     Route: 048
     Dates: start: 20140306, end: 20160227
  2. XARELTO [Suspect]
     Active Substance: RIVAROXABAN
     Indication: DEEP VEIN THROMBOSIS

REACTIONS (6)
  - Chronic kidney disease [Fatal]
  - Type 2 diabetes mellitus [Fatal]
  - Lower gastrointestinal haemorrhage [Unknown]
  - Clostridium difficile colitis [Fatal]
  - Septic shock [Fatal]
  - Obesity [Fatal]

NARRATIVE: CASE EVENT DATE: 201512
